FAERS Safety Report 25117522 (Version 1)
Quarter: 2025Q1

REPORT INFORMATION
  Report Type: Spontaneous
  Country: CN (occurrence: CN)
  Receive Date: 20250325
  Receipt Date: 20250325
  Transmission Date: 20250409
  Serious: Yes (Other)
  Sender: ALEXION PHARMACEUTICALS
  Company Number: CN-AstraZeneca-2021A689178

PATIENT
  Age: 40 Year
  Weight: 53 kg

DRUGS (1)
  1. SYMBICORT [Suspect]
     Active Substance: BUDESONIDE\FORMOTEROL FUMARATE DIHYDRATE
     Dosage: 320 MICROGRAMS, TWO TIMES DAILY

REACTIONS (2)
  - Sensation of foreign body [Recovering/Resolving]
  - Dysphonia [Recovering/Resolving]
